FAERS Safety Report 9069589 (Version 1)
Quarter: 2013Q1

REPORT INFORMATION
  Report Type: Report from Study
  Country: US (occurrence: US)
  Receive Date: 20130215
  Receipt Date: 20130215
  Transmission Date: 20140127
  Serious: Yes (Other)
  Sender: FDA-Public Use
  Company Number: PHEH2013US003678

PATIENT
  Age: 51 Year
  Sex: Female

DRUGS (2)
  1. GILENYA [Suspect]
     Indication: MULTIPLE SCLEROSIS
     Dosage: 1 DF, QD
     Dates: start: 20110610
  2. GILENYA [Suspect]
     Dosage: 1 DF, QOD
     Dates: end: 201203

REACTIONS (4)
  - Breast cancer [Recovered/Resolved with Sequelae]
  - Scar [Unknown]
  - White blood cell count decreased [Recovered/Resolved]
  - Inappropriate schedule of drug administration [Unknown]
